FAERS Safety Report 8859465 (Version 1)
Quarter: 2012Q4

REPORT INFORMATION
  Report Type: Spontaneous
  Country: DK (occurrence: None)
  Receive Date: 20121023
  Receipt Date: 20121023
  Transmission Date: 20130627
  Serious: Yes (Other)
  Sender: FDA-Public Use
  Company Number: 2012MA012442

PATIENT
  Age: 44 Year
  Sex: Female

DRUGS (6)
  1. PACLITAXEL [Suspect]
     Indication: BREAST DUCTAL CARCINOMA
     Dosage: CYCLICAL
     Route: 042
     Dates: start: 20120910, end: 20120910
  2. ADRIBLASTINA [Concomitant]
  3. TRIMETON [Concomitant]
  4. RANIDIL [Concomitant]
  5. ONDANSETRON [Concomitant]
  6. SOLU-CORTEF [Concomitant]

REACTIONS (4)
  - Suffocation feeling [None]
  - Flushing [None]
  - Paraesthesia [None]
  - Infusion related reaction [None]
